FAERS Safety Report 9743178 (Version 1)
Quarter: 2013Q4

REPORT INFORMATION
  Report Type: Spontaneous
  Country: US (occurrence: US)
  Receive Date: 20131210
  Receipt Date: 20131210
  Transmission Date: 20140711
  Serious: No
  Sender: FDA-Public Use
  Company Number: US-GILEAD-2009-0024893

PATIENT
  Age: 38 Year
  Sex: Female

DRUGS (6)
  1. LETAIRIS [Suspect]
     Indication: PULMONARY ARTERIAL HYPERTENSION
     Route: 048
     Dates: start: 20090717, end: 20090917
  2. FLONASE [Concomitant]
  3. PLAQUENIL [Concomitant]
  4. OMEPRAZOLE [Concomitant]
  5. ALLEGRA [Concomitant]
  6. CELLCEPT [Concomitant]

REACTIONS (2)
  - Pulmonary function test decreased [Recovering/Resolving]
  - Menorrhagia [Recovered/Resolved]
